FAERS Safety Report 4293256-X (Version None)
Quarter: 2004Q1

REPORT INFORMATION
  Report Type: 
  Country: None (occurrence: None)
  Receive Date: 20040126
  Receipt Date: 20031015
  Transmission Date: 20041129
  Serious: No
  Sender: FDA-Public Use
  Company Number: USA031049957

PATIENT
  Age: 46 Year
  Sex: Male

DRUGS (6)
  1. FORTEO [Suspect]
     Indication: OSTEOPOROSIS
     Dosage: 20 UG/DAY
     Dates: start: 20031013
  2. ALBUTEROL [Concomitant]
  3. ATROVENT [Concomitant]
  4. CORTISONE [Concomitant]
  5. CALCIUM [Concomitant]
  6. MIACALCIN [Concomitant]

REACTIONS (2)
  - FATIGUE [None]
  - SOMNOLENCE [None]
